FAERS Safety Report 18188396 (Version 1)
Quarter: 2020Q3

REPORT INFORMATION
  Report Type: Spontaneous
  Country: ES (occurrence: ES)
  Receive Date: 20200824
  Receipt Date: 20200824
  Transmission Date: 20201103
  Serious: Yes (Hospitalization)
  Sender: FDA-Public Use
  Company Number: ES-PFIZER INC-2020321867

PATIENT
  Age: 66 Year
  Sex: Female

DRUGS (18)
  1. OMEPRAZOL KERN PHARMA [Concomitant]
     Dosage: 20 MG, 1X/DAY
     Route: 048
     Dates: start: 20140130
  2. LANTUS SOLOSTAR [Concomitant]
     Active Substance: INSULIN GLARGINE
     Dosage: 46 IU, DAILY
     Route: 058
     Dates: start: 20200303
  3. FUROSEMIDA SANDOZ [Concomitant]
     Active Substance: FUROSEMIDE
     Dosage: 80 MG, DAILY
     Route: 048
     Dates: start: 20150901
  4. TARDYFERON [Concomitant]
     Active Substance: FERROUS SULFATE
     Dosage: 80 MG, DAILY
     Route: 048
     Dates: start: 20140814
  5. BISOPROLOL COR SANDOZ [Concomitant]
     Active Substance: BISOPROLOL
     Dosage: 2.5 MG, 1X/DAY
     Route: 048
     Dates: start: 20200709
  6. PIPERACILINA + TAZOBACTAM [Concomitant]
     Active Substance: PIPERACILLIN SODIUM\TAZOBACTAM SODIUM
     Dosage: 1 DF, 3X/DAY
     Route: 048
  7. PLUSVENT ACCUHALER [Concomitant]
     Active Substance: FLUTICASONE PROPIONATE\SALMETEROL XINAFOATE
     Dosage: 1 DF, 2X/DAY (EVERY 12 HOURS)
     Route: 055
     Dates: start: 20141117
  8. CLEXANE [Suspect]
     Active Substance: ENOXAPARIN SODIUM
     Dosage: 60 MG, DAILY
     Route: 058
     Dates: start: 2020, end: 20200714
  9. GABAPENTINA TEVA [Concomitant]
     Dosage: 100 MG, DAILY
     Route: 048
     Dates: start: 20200604
  10. NOVORAPID [Concomitant]
     Active Substance: INSULIN ASPART
     Dosage: 4 IU, 3X/DAY
     Route: 058
     Dates: start: 20200303
  11. LINEZOLID. [Suspect]
     Active Substance: LINEZOLID
     Indication: POSTOPERATIVE WOUND INFECTION
     Dosage: 600 MG, 2X/DAY
     Route: 048
     Dates: start: 202006, end: 20200716
  12. CRESTOR [Concomitant]
     Active Substance: ROSUVASTATIN CALCIUM
     Dosage: 10 MG, DAILY
     Route: 048
     Dates: start: 20121004
  13. ZOLPIDEM TEVAGEN [Concomitant]
     Active Substance: ZOLPIDEM TARTRATE
     Dosage: 10 MG, DAILY
     Route: 048
     Dates: start: 20200610
  14. HIDROCLOROTIAZIDA KERN PHARMA [Concomitant]
     Active Substance: HYDROCHLOROTHIAZIDE
     Dosage: 50 MG, DAILY
     Route: 048
     Dates: start: 20160128
  15. ADIRO [Concomitant]
     Active Substance: ASPIRIN
     Dosage: 100 MG, DAILY
     Route: 048
     Dates: start: 20190701
  16. ROCALTROL [Concomitant]
     Active Substance: CALCITRIOL
     Dosage: 0.25 UG, EVERY 48 HOURS
     Route: 048
     Dates: start: 20160505
  17. SOLINITRINA [Concomitant]
     Dosage: 0.8 MG, DAILY
     Route: 060
     Dates: start: 20171005
  18. ALOPURINOL NORMON [Concomitant]
     Active Substance: ALLOPURINOL
     Dosage: 100 MG, 1X/DAY
     Route: 048
     Dates: start: 20191016

REACTIONS (3)
  - Rectal haemorrhage [Recovered/Resolved]
  - Anaemia [Not Recovered/Not Resolved]
  - Thrombocytopenia [Recovered/Resolved]

NARRATIVE: CASE EVENT DATE: 20200714
